FAERS Safety Report 6045359-7 (Version None)
Quarter: 2009Q1

REPORT INFORMATION
  Report Type: 
  Country: None (occurrence: None)
  Receive Date: 20090121
  Receipt Date: 20080822
  Transmission Date: 20090719
  Serious: Yes (Other)
  Sender: FDA-Public Use
  Company Number: US-JNJFOC-20080805742

PATIENT
  Sex: Male
  Weight: 78.02 kg

DRUGS (15)
  1. PREZISTA [Suspect]
     Dates: start: 20080414, end: 20080507
  2. PREZISTA [Suspect]
     Dates: start: 20080414, end: 20080507
  3. PREZISTA [Suspect]
     Indication: HIV INFECTION
     Dates: start: 20080414, end: 20080507
  4. NORVIR [Suspect]
  5. NORVIR [Suspect]
  6. NORVIR [Suspect]
     Indication: HIV INFECTION
  7. PREDNISOLONE [Concomitant]
  8. BACTRIM [Concomitant]
     Indication: HIV INFECTION
  9. EPZICOM [Concomitant]
     Indication: HIV INFECTION
     Dates: start: 20080414, end: 20080417
  10. VIREAD [Concomitant]
  11. VIREAD [Concomitant]
     Indication: HIV INFECTION
  12. ISENTRESS [Concomitant]
  13. ISENTRESS [Concomitant]
     Indication: HIV INFECTION
  14. DAPSONE [Concomitant]
  15. BENADRYL [Concomitant]

REACTIONS (3)
  - CONJUNCTIVITIS [None]
  - PYREXIA [None]
  - RASH MACULO-PAPULAR [None]
